FAERS Safety Report 15868101 (Version 2)
Quarter: 2019Q1

REPORT INFORMATION
  Report Type: Report from Study
  Country: US (occurrence: US)
  Receive Date: 20190125
  Receipt Date: 20190216
  Transmission Date: 20190417
  Serious: Yes (Hospitalization)
  Sender: FDA-Public Use
  Company Number: US-IPSEN BIOPHARMACEUTICALS, INC.-2019-01082

PATIENT
  Sex: Female

DRUGS (10)
  1. SUCRALFATE. [Concomitant]
     Active Substance: SUCRALFATE
  2. LORAZEPAM. [Concomitant]
     Active Substance: LORAZEPAM
     Route: 048
  3. CELEXA [Concomitant]
     Active Substance: CITALOPRAM HYDROBROMIDE
  4. LOMOTIL [Concomitant]
     Active Substance: ATROPINE SULFATE\DIPHENOXYLATE HYDROCHLORIDE
     Indication: DIARRHOEA
     Dosage: 2.5MG/0.025 MG ONE AFTER EACH LOOSE STOOL
  5. OCTREOTIDE. [Concomitant]
     Active Substance: OCTREOTIDE
  6. ONDANSETRON [Concomitant]
     Active Substance: ONDANSETRON
  7. DEXLANSOPRAZOLE [Concomitant]
     Active Substance: DEXLANSOPRAZOLE
     Route: 048
  8. TRAMADOL. [Concomitant]
     Active Substance: TRAMADOL
     Route: 048
  9. SOMATULINE DEPOT [Suspect]
     Active Substance: LANREOTIDE ACETATE
     Indication: SMALL INTESTINE CARCINOMA
     Dosage: INJECTION SITES : UPPER OUTER BUTTOCKS: ROTATING BETWEEN THE SITES, SUPERIOR EXTERNAL QUADRANTS?120M
     Route: 058
     Dates: start: 201803
  10. MAGNESIUM OXIDE. [Concomitant]
     Active Substance: MAGNESIUM OXIDE
     Route: 048

REACTIONS (2)
  - Malaise [Unknown]
  - Hospitalisation [Unknown]
